FAERS Safety Report 9249821 (Version 3)
Quarter: 2013Q4

REPORT INFORMATION
  Report Type: Report from Study
  Country: US (occurrence: US)
  Receive Date: 20130423
  Receipt Date: 20131001
  Transmission Date: 20140711
  Serious: Yes (Hospitalization)
  Sender: FDA-Public Use
  Company Number: US-US-EMD SERONO, INC.-7206300

PATIENT
  Age: 41 Year
  Sex: Female

DRUGS (5)
  1. REBIF [Suspect]
     Indication: MULTIPLE SCLEROSIS
     Route: 058
     Dates: start: 20110829, end: 20130411
  2. REBIF [Suspect]
     Route: 058
     Dates: start: 20130416
  3. LORTAB                             /00607101/ [Concomitant]
     Indication: PAIN
  4. LORTAB                             /00607101/ [Concomitant]
     Indication: HEADACHE
  5. PERCOCET                           /00446701/ [Concomitant]
     Indication: HEADACHE

REACTIONS (5)
  - Multiple sclerosis relapse [Recovering/Resolving]
  - Electrolyte imbalance [Recovering/Resolving]
  - Vomiting [Unknown]
  - Muscle spasms [Unknown]
  - Drug dose omission [Unknown]
